FAERS Safety Report 5327615-0 (Version None)
Quarter: 2007Q2

REPORT INFORMATION
  Report Type: 
  Country: None (occurrence: None)
  Receive Date: 20070517
  Receipt Date: 20070514
  Transmission Date: 20071010
  Serious: Yes (Other)
  Sender: FDA-Public Use
  Company Number: PHEH2007US07362

PATIENT
  Sex: Female

DRUGS (3)
  1. SYNTHROID [Concomitant]
  2. ZYRTEC [Suspect]
  3. ZELNORM [Suspect]
     Indication: GASTROINTESTINAL DISORDER

REACTIONS (3)
  - DEPRESSION [None]
  - FATIGUE [None]
  - SUICIDAL IDEATION [None]
